FAERS Safety Report 9447411 (Version 1)
Quarter: 2013Q3

REPORT INFORMATION
  Report Type: Spontaneous
  Country: US (occurrence: US)
  Receive Date: 20130806
  Receipt Date: 20130806
  Transmission Date: 20140515
  Serious: Yes (Hospitalization)
  Sender: FDA-Public Use
  Company Number: FK201302957

PATIENT
  Age: 78 Year
  Sex: Female

DRUGS (3)
  1. FLUOROURACIL (FLUOROURACIL)(FLUOROURACIL) [Suspect]
     Indication: COLON CANCER STAGE II
     Route: 042
  2. LEUCOVORIN CALCIUM [Suspect]
     Indication: COLON CANCER STAGE II
  3. OXALIPLATIN [Suspect]
     Indication: COLON CANCER STAGE II

REACTIONS (4)
  - Organising pneumonia [None]
  - Neutropenia [None]
  - Thrombocytopenia [None]
  - Anaemia [None]
